FAERS Safety Report 8520701-3 (Version None)
Quarter: 2012Q3

REPORT INFORMATION
  Report Type: 
  Country: None (occurrence: None)
  Receive Date: 20120705
  Receipt Date: 20120628
  Transmission Date: 20120928
  Serious: Yes (Other)
  Sender: FDA-Public Use
  Company Number: WAES 1205USA00026

PATIENT
  Age: 16 Year
  Sex: Female

DRUGS (16)
  1. ACETAMINOPHEN [Concomitant]
  2. ONDANSETRON HYDROCHLORIDE [Concomitant]
  3. EMEND [Suspect]
     Indication: PROPHYLAXIS OF NAUSEA AND VOMITING
     Dosage: 125 MG/1X, PO
     Route: 048
     Dates: start: 20120417, end: 20120417
  4. EMEND [Suspect]
     Indication: PROPHYLAXIS OF NAUSEA AND VOMITING
     Dosage: 125 MG/1X, PO
     Route: 048
     Dates: start: 20120418, end: 20120418
  5. EMEND [Suspect]
     Indication: PROPHYLAXIS OF NAUSEA AND VOMITING
     Dosage: 125 MG/1X, PO
     Route: 048
     Dates: start: 20120419, end: 20120419
  6. DEXAMETHASONE [Suspect]
     Indication: PROPHYLAXIS OF NAUSEA AND VOMITING
     Dosage: 12;15 ML, TID, IV
     Route: 042
     Dates: start: 20120418, end: 20120420
  7. DEXAMETHASONE [Suspect]
     Indication: PROPHYLAXIS OF NAUSEA AND VOMITING
     Dosage: 12;15 ML, TID, IV
     Route: 042
     Dates: start: 20120417, end: 20120417
  8. CALCIUM GLUCONATE + DEXTROSE+MAGNE [Concomitant]
  9. DIHYDROCODEINE BITARTRATE INJ [Concomitant]
  10. METOCLOPRAMIDE [Concomitant]
  11. LEVOMEPROMAZINE [Concomitant]
  12. DOXORUBICIN HCL [Suspect]
     Indication: BONE SARCOMA
     Dosage: 59;63 MG/DAILY, IV
     Route: 042
     Dates: start: 20120417, end: 20120419
  13. AMETOP [Concomitant]
  14. ONDANSETRON HYDROCHLORIDE [Suspect]
     Indication: PROPHYLAXIS OF NAUSEA AND VOMITING
     Dosage: 8 MG/PM, IV
     Route: 042
     Dates: start: 20120417, end: 20120420
  15. ONDANSETRON HYDROCHLORIDE [Suspect]
     Indication: PROPHYLAXIS OF NAUSEA AND VOMITING
     Dosage: 8 MG/PM, IV
     Route: 042
     Dates: start: 20120418, end: 20120420
  16. SOLUTION CHLORIDE [Concomitant]

REACTIONS (2)
  - ELECTROCARDIOGRAM T WAVE INVERSION [None]
  - SINUS ARRHYTHMIA [None]
